FAERS Safety Report 5091449-5 (Version None)
Quarter: 2006Q3

REPORT INFORMATION
  Report Type: 
  Country: None (occurrence: None)
  Receive Date: 20060829
  Receipt Date: 20060823
  Transmission Date: 20061208
  Serious: Yes (Other)
  Sender: FDA-Public Use
  Company Number: US-BRISTOL-MYERS SQUIBB COMPANY-13486261

PATIENT
  Age: 70 Year
  Sex: Female

DRUGS (3)
  1. AVAPRO [Suspect]
     Route: 048
  2. LASIX [Suspect]
  3. CARDIZEM LA [Suspect]

REACTIONS (1)
  - ANEURYSM [None]
